FAERS Safety Report 5345885-X (Version None)
Quarter: 2007Q2

REPORT INFORMATION
  Report Type: 
  Country: None (occurrence: None)
  Receive Date: 20070605
  Receipt Date: 20070521
  Transmission Date: 20071010
  Serious: Yes (Hospitalization)
  Sender: FDA-Public Use
  Company Number: GB-ROCHE-494638

PATIENT
  Age: 20 Year
  Sex: Female
  Weight: 99.3 kg

DRUGS (1)
  1. XENICAL [Suspect]
     Indication: OBESITY
     Route: 048
     Dates: start: 20070220

REACTIONS (3)
  - ILL-DEFINED DISORDER [None]
  - RASH [None]
  - SWELLING [None]
